FAERS Safety Report 5533324-5 (Version None)
Quarter: 2007Q4

REPORT INFORMATION
  Report Type: 
  Country: None (occurrence: None)
  Receive Date: 20071129
  Receipt Date: 20071129
  Transmission Date: 20080405
  Serious: Yes (Hospitalization)
  Sender: FDA-Public Use
  Company Number: None

PATIENT
  Sex: Male
  Weight: 56.7 kg

DRUGS (4)
  1. FLUOROURACIL [Suspect]
     Dosage: 5040 MG
  2. ERBITUX [Suspect]
     Dosage: 890 MG
  3. LEUCOVORIN CALCIUM [Suspect]
     Dosage: 720 MG
  4. ELOXATIN [Suspect]
     Dosage: 153 MG

REACTIONS (13)
  - ASTHENIA [None]
  - BODY TEMPERATURE INCREASED [None]
  - DEHYDRATION [None]
  - DIARRHOEA [None]
  - DIZZINESS [None]
  - FALL [None]
  - GAIT DISTURBANCE [None]
  - HEAD INJURY [None]
  - HYPONATRAEMIA [None]
  - HYPOTENSION [None]
  - JOINT INJURY [None]
  - POLLAKIURIA [None]
  - VOMITING [None]
